APPROVED DRUG PRODUCT: METHYLTESTOSTERONE
Active Ingredient: METHYLTESTOSTERONE
Strength: 10MG
Dosage Form/Route: TABLET;ORAL
Application: A080214 | Product #002
Applicant: PRIVATE FORMULATIONS INC
Approved: Approved Prior to Jan 1, 1982 | RLD: No | RS: No | Type: DISCN